FAERS Safety Report 6169416-X (Version None)
Quarter: 2009Q2

REPORT INFORMATION
  Report Type: 
  Country: None (occurrence: None)
  Receive Date: 20090428
  Receipt Date: 20070115
  Transmission Date: 20091009
  Serious: Yes (Other)
  Sender: FDA-Public Use
  Company Number: PHBS2006JP17796

PATIENT
  Sex: Male
  Weight: 52.9 kg

DRUGS (5)
  1. TEGRETOL [Suspect]
     Indication: EPILEPSY
     Dosage: 200 MG, BID
     Route: 048
     Dates: start: 19960501, end: 19990501
  2. TEGRETOL [Suspect]
     Dosage: 700 MG/DAY
     Route: 048
     Dates: start: 19990501
  3. EPHEDRA TEAS [Concomitant]
     Indication: ASTHENIA
     Route: 048
     Dates: start: 19990201
  4. HOCHUUEKKITOU [Concomitant]
     Indication: ASTHENIA
     Route: 048
     Dates: start: 20010101
  5. YOKUKAN-SAN [Concomitant]
     Indication: ASTHENIA
     Route: 048
     Dates: start: 20040401

REACTIONS (9)
  - ANOREXIA [None]
  - BLOOD THYROID STIMULATING HORMONE DECREASED [None]
  - BODY TEMPERATURE INCREASED [None]
  - DIARRHOEA [None]
  - HYPERHIDROSIS [None]
  - HYPERTHYROIDISM [None]
  - THYROXINE INCREASED [None]
  - TRI-IODOTHYRONINE INCREASED [None]
  - WEIGHT DECREASED [None]
